FAERS Safety Report 18523076 (Version 1)
Quarter: 2020Q4

REPORT INFORMATION
  Report Type: Spontaneous
  Country: US (occurrence: US)
  Receive Date: 20201119
  Receipt Date: 20201119
  Transmission Date: 20210114
  Serious: No
  Sender: FDA-Public Use
  Company Number: US-009507513-2009USA004698

PATIENT
  Sex: Female

DRUGS (2)
  1. ETONOGESTREL (+) ETHINYL ESTRADIOL [Suspect]
     Active Substance: ETHINYL ESTRADIOL\ETONOGESTREL
     Indication: CONTRACEPTION
     Dosage: 1 RING (POTENCY: 2.7/ 11.7 MG)
     Route: 067
     Dates: start: 202006
  2. NUVARING [Suspect]
     Active Substance: ETHINYL ESTRADIOL\ETONOGESTREL
     Dosage: UNK
     Route: 067
     Dates: end: 2020

REACTIONS (7)
  - Lethargy [Not Recovered/Not Resolved]
  - Product substitution issue [Unknown]
  - Anxiety [Not Recovered/Not Resolved]
  - Mood swings [Not Recovered/Not Resolved]
  - Vaginal haemorrhage [Not Recovered/Not Resolved]
  - Menstruation irregular [Not Recovered/Not Resolved]
  - Muscle spasms [Not Recovered/Not Resolved]

NARRATIVE: CASE EVENT DATE: 2020
